FAERS Safety Report 5913437-6 (Version None)
Quarter: 2008Q4

REPORT INFORMATION
  Report Type: 
  Country: None (occurrence: None)
  Receive Date: 20081008
  Receipt Date: 20081008
  Transmission Date: 20090506
  Serious: Yes (Hospitalization)
  Sender: FDA-Public Use
  Company Number: None

PATIENT
  Sex: Female
  Weight: 49.8 kg

DRUGS (2)
  1. CARBOPLATIN [Suspect]
     Dosage: 280 MG
     Dates: end: 20080919
  2. PACLITAXEL [Suspect]
     Dosage: 196 MG
     Dates: end: 20080919

REACTIONS (5)
  - NEUTROPHIL COUNT DECREASED [None]
  - OESOPHAGEAL DILATATION [None]
  - OESOPHAGEAL DISORDER [None]
  - PNEUMONIA [None]
  - WHITE BLOOD CELL COUNT DECREASED [None]
